FAERS Safety Report 15291538 (Version 1)
Quarter: 2018Q3

REPORT INFORMATION
  Report Type: Spontaneous
  Country: US (occurrence: US)
  Receive Date: 20180806
  Receipt Date: 20180806
  Transmission Date: 20181010
  Serious: Yes (Other)
  Sender: FDA-Public Use
  Company Number: None

PATIENT
  Age: 40 Year
  Sex: Male
  Weight: 96.75 kg

DRUGS (2)
  1. PROAIR RESPICLICK [Suspect]
     Active Substance: ALBUTEROL SULFATE
     Indication: BRONCHOSPASM
     Dosage: ?          QUANTITY:200 INHALATION(S);?
     Route: 055
     Dates: start: 20180805, end: 20180806
  2. ATORVASTATIN [Concomitant]
     Active Substance: ATORVASTATIN

REACTIONS (4)
  - Product design issue [None]
  - Dyspnoea [None]
  - Drug ineffective [None]
  - Dyspnoea exertional [None]

NARRATIVE: CASE EVENT DATE: 20180805
